FAERS Safety Report 15275430 (Version 1)
Quarter: 2018Q3

REPORT INFORMATION
  Report Type: Spontaneous
  Country: US (occurrence: US)
  Receive Date: 20180727
  Receipt Date: 20180727
  Transmission Date: 20181010
  Serious: Yes (Hospitalization)
  Sender: FDA-Public Use
  Company Number: None

PATIENT
  Age: 37 Year
  Sex: Male

DRUGS (9)
  1. ACETAMINOPHEN. [Concomitant]
     Active Substance: ACETAMINOPHEN
  2. MULTIVITAMIN [Concomitant]
     Active Substance: VITAMINS
  3. FAMOTIDINE. [Concomitant]
     Active Substance: FAMOTIDINE
  4. URSODIAL [Concomitant]
  5. IBUPROFEN. [Suspect]
     Active Substance: IBUPROFEN
     Route: 048
  6. OXYCODONE [Concomitant]
     Active Substance: OXYCODONE
  7. SENNA [Concomitant]
     Active Substance: SENNA LEAF\SENNOSIDES\SENNOSIDES A AND B
  8. ASPIRIN. [Suspect]
     Active Substance: ASPIRIN
     Indication: PROPHYLAXIS
     Route: 048
     Dates: start: 20170712, end: 20170721
  9. DOCUSATE [Concomitant]
     Active Substance: DOCUSATE

REACTIONS (6)
  - Gastrointestinal haemorrhage [None]
  - Dizziness [None]
  - Heart rate increased [None]
  - Haemoglobin decreased [None]
  - Melaena [None]
  - White blood cell count increased [None]

NARRATIVE: CASE EVENT DATE: 20170721
